FAERS Safety Report 14880835 (Version 1)
Quarter: 2018Q2

REPORT INFORMATION
  Report Type: Spontaneous
  Country: US (occurrence: US)
  Receive Date: 20180511
  Receipt Date: 20180511
  Transmission Date: 20180711
  Serious: No
  Sender: FDA-Public Use
  Company Number: US-PFIZER INC-2018195080

PATIENT
  Age: 60 Year
  Sex: Female
  Weight: 98.87 kg

DRUGS (1)
  1. IBRANCE [Suspect]
     Active Substance: PALBOCICLIB
     Indication: BREAST CANCER METASTATIC
     Dosage: 125 MG, CYCLIC (DAYS 1-21 Q28 DAYS)
     Route: 048
     Dates: start: 20180325

REACTIONS (5)
  - Glossodynia [Unknown]
  - Oral pain [Unknown]
  - Tongue coated [Unknown]
  - Constipation [Unknown]
  - Bone pain [Unknown]
